FAERS Safety Report 6129252-7 (Version None)
Quarter: 2009Q1

REPORT INFORMATION
  Report Type: 
  Country: None (occurrence: None)
  Receive Date: 20090324
  Receipt Date: 20090319
  Transmission Date: 20090719
  Serious: Yes (Hospitalization, Other)
  Sender: FDA-Public Use
  Company Number: US-ABBOTT-09P-163-0563575-00

PATIENT
  Sex: Female
  Weight: 53.572 kg

DRUGS (9)
  1. HUMIRA [Suspect]
     Indication: RHEUMATOID ARTHRITIS
     Route: 058
  2. COUMADIN [Concomitant]
     Indication: THROMBOSIS
     Route: 048
  3. BENICAR [Concomitant]
     Indication: DRUG USE FOR UNKNOWN INDICATION
     Route: 048
  4. ATENOLOL [Concomitant]
     Indication: DRUG USE FOR UNKNOWN INDICATION
     Route: 048
  5. THYROID MEDICATION [Concomitant]
     Indication: THYROID DISORDER
     Dosage: CAN'T REMEMBER NAME
     Route: 048
  6. PRILOSEC [Concomitant]
     Indication: ABDOMINAL DISCOMFORT
     Route: 048
  7. LISINOPRIL [Concomitant]
     Indication: HYPERTENSION
     Route: 048
  8. PHOSLO [Concomitant]
     Indication: RENAL FAILURE
     Route: 048
  9. DILTIAZEM HCL [Concomitant]
     Indication: DRUG USE FOR UNKNOWN INDICATION
     Route: 048

REACTIONS (4)
  - BLOOD GLUCOSE INCREASED [None]
  - DEHYDRATION [None]
  - MUSCLE SPASMS [None]
  - RENAL FAILURE [None]
